FAERS Safety Report 17598053 (Version 1)
Quarter: 2020Q1

REPORT INFORMATION
  Report Type: Spontaneous
  Country: US (occurrence: US)
  Receive Date: 20200330
  Receipt Date: 20200330
  Transmission Date: 20200409
  Serious: No
  Sender: FDA-Public Use
  Company Number: US-PFIZER INC-2020128675

PATIENT
  Age: 73 Year
  Sex: Female

DRUGS (1)
  1. IBRANCE [Suspect]
     Active Substance: PALBOCICLIB
     Dosage: 125 MG, CYCLIC (ONCE A DAY FOR THREE WEEKS AND THEN ONE WEEK OFF)
     Route: 048
     Dates: start: 20200226

REACTIONS (4)
  - Insomnia [Unknown]
  - Fatigue [Unknown]
  - Diarrhoea [Unknown]
  - Productive cough [Unknown]
